FAERS Safety Report 21530956 (Version 2)
Quarter: 2022Q4

REPORT INFORMATION
  Report Type: Spontaneous
  Country: US (occurrence: US)
  Receive Date: 20221031
  Receipt Date: 20221102
  Transmission Date: 20230113
  Serious: No
  Sender: FDA-Public Use
  Company Number: US-SANOFI-01331959

PATIENT
  Sex: Male

DRUGS (4)
  1. DUPIXENT [Suspect]
     Active Substance: DUPILUMAB
     Dosage: 2 DF, 1X
     Dates: start: 202209, end: 202209
  2. DUPIXENT [Suspect]
     Active Substance: DUPILUMAB
     Dosage: 1 DF, QOW
     Dates: start: 202210
  3. STELARA [Concomitant]
     Active Substance: USTEKINUMAB
     Indication: Psoriasis
     Dosage: UNK
  4. RETINOL [Concomitant]
     Active Substance: RETINOL
     Indication: Eczema
     Dosage: UNK
     Route: 061

REACTIONS (4)
  - Peripheral swelling [Unknown]
  - Scrotal pain [Unknown]
  - Feeling hot [Unknown]
  - Pruritus [Unknown]
